FAERS Safety Report 8481752-0 (Version None)
Quarter: 2012Q3

REPORT INFORMATION
  Report Type: 
  Country: None (occurrence: None)
  Receive Date: 20120702
  Receipt Date: 20120626
  Transmission Date: 20120928
  Serious: Yes (Other)
  Sender: FDA-Public Use
  Company Number: US-AMGEN-USASP2011028188

PATIENT
  Age: 69 Year
  Sex: Female
  Weight: 112.2 kg

DRUGS (7)
  1. BUMEX [Concomitant]
     Indication: OEDEMA
     Dosage: 1 MG, QD
     Route: 048
     Dates: start: 20070101
  2. ACIPHEX [Concomitant]
     Indication: DYSPEPSIA
     Dosage: 20 MG, QD
     Route: 048
     Dates: start: 20050101
  3. ENBREL [Suspect]
     Indication: RHEUMATOID ARTHRITIS
     Dosage: 50 MG, QWK
     Route: 058
     Dates: start: 20110321, end: 20110406
  4. ENBREL [Suspect]
     Dosage: 50 MG, QWK
     Route: 058
     Dates: start: 20110201, end: 20110315
  5. LEVOTHYROXINE SODIUM [Concomitant]
     Indication: HYPOTHYROIDISM
     Dosage: 100 MUG, QD
     Route: 048
     Dates: start: 20050101
  6. LOPERAMIDE [Concomitant]
     Indication: COLITIS ULCERATIVE
     Dosage: 2 MG, BID
     Route: 048
     Dates: start: 20070101
  7. PREDNISONE TAB [Concomitant]
     Indication: INFLAMMATION
     Dosage: 7 MG, QD
     Route: 048
     Dates: start: 20000101

REACTIONS (7)
  - OEDEMA PERIPHERAL [None]
  - INJECTION SITE REACTION [None]
  - EYE SWELLING [None]
  - ABDOMINAL DISCOMFORT [None]
  - INJECTION SITE RASH [None]
  - ANXIETY [None]
  - RASH [None]
